FAERS Safety Report 9321464 (Version 1)
Quarter: 2013Q2

REPORT INFORMATION
  Report Type: Spontaneous
  Country: US (occurrence: None)
  Receive Date: 20130528
  Receipt Date: 20130528
  Transmission Date: 20140414
  Serious: Yes (Hospitalization)
  Sender: FDA-Public Use
  Company Number: ACO_36335_2013

PATIENT
  Age: 60 Year
  Sex: Female
  Weight: 65.8 kg

DRUGS (17)
  1. AMPYRA (DALFAMPRIDINE) TABLET, 10MG [Suspect]
     Indication: MULTIPLE SCLEROSIS
     Route: 048
     Dates: start: 2010, end: 201302
  2. AMPYRA (DALFAMPRIDINE) TABLET, 10MG [Suspect]
     Indication: GAIT DISTURBANCE
     Route: 048
     Dates: start: 2010, end: 201302
  3. TYSABRI (NATALIZUMAB) [Suspect]
     Indication: MULTIPLE SCLEROSIS
  4. MEROPENEM [Suspect]
     Indication: URINARY TRACT INFECTION
     Dates: start: 201304
  5. MEROPENEM [Suspect]
     Indication: SEPSIS
     Dates: start: 201304
  6. BACLOFEN (BACLOFEN) [Concomitant]
  7. PROVERA (MEDROXYPROGESTERONE ACETATE) [Concomitant]
  8. RELAFEN (NABUMETONE) [Concomitant]
  9. CRANBERRY (CRANBERRY) [Concomitant]
  10. FISH OIL (FISH OIL) [Concomitant]
  11. GLUCOSAMINE (GLUCOSAMINE SULFATE) [Concomitant]
  12. IRON (FERROUS SULFATE) [Concomitant]
  13. VITAMIN C [Concomitant]
  14. PROTONIX (PANTOPRAZOLE SODIUM SESQUIHYDRATE) [Concomitant]
  15. VALTREX (VALACICLOVIR HYDROCHLORIDE) [Concomitant]
  16. LEVOTHYROXINE (LEVOTHYROXINE) [Concomitant]
  17. VITAMIN D (COLECALCIFEROL) [Concomitant]

REACTIONS (5)
  - Sepsis [None]
  - Renal impairment [None]
  - Blood creatinine increased [None]
  - Urinary tract infection [None]
  - Psychogenic seizure [None]
